FAERS Safety Report 6288567-2 (Version None)
Quarter: 2009Q3

REPORT INFORMATION
  Report Type: 
  Country: None (occurrence: None)
  Receive Date: 20090727
  Receipt Date: 20090715
  Transmission Date: 20100115
  Serious: Yes (Hospitalization)
  Sender: FDA-Public Use
  Company Number: 2009AP002578

PATIENT
  Age: 69 Year
  Sex: Male

DRUGS (8)
  1. CLOZAPINE [Suspect]
     Dosage: 50 MG;TAB;PO;QD
     Route: 048
     Dates: start: 20090520, end: 20090604
  2. CLONAZEPAM [Suspect]
     Indication: SCHIZOAFFECTIVE DISORDER
     Dosage: 7.5 MG;TAB;PO;QD
     Route: 048
  3. SEROQUEL [Suspect]
     Indication: SCHIZOAFFECTIVE DISORDER
     Dosage: 37.5 MG;QD
  4. ZYPREXA [Suspect]
     Indication: SCHIZOAFFECTIVE DISORDER
     Dosage: 12.5 MG;QD
  5. PROCYCLIDINE HYDROCHLORIDE 2MG TAB [Concomitant]
  6. LITHIUM CARBONATE [Concomitant]
  7. LOSARTAN POTASSIUM [Concomitant]
  8. CLOPIDOGREL BISULFATE [Concomitant]

REACTIONS (2)
  - FALL [None]
  - SEDATION [None]
